FAERS Safety Report 13756175 (Version 1)
Quarter: 2017Q3

REPORT INFORMATION
  Report Type: Spontaneous
  Country: US (occurrence: US)
  Receive Date: 20170714
  Receipt Date: 20170714
  Transmission Date: 20171127
  Serious: Yes (Other)
  Sender: FDA-Public Use
  Company Number: US-G+W LABS-GW2017US000189

PATIENT

DRUGS (2)
  1. CICLOPIROX. [Suspect]
     Active Substance: CICLOPIROX
     Indication: ONYCHOMYCOSIS
     Dosage: 8 %, QD
     Route: 061
     Dates: start: 201704, end: 201705
  2. CICLOPIROX. [Suspect]
     Active Substance: CICLOPIROX
     Dosage: 8 %, QD
     Route: 061
     Dates: start: 201707

REACTIONS (1)
  - Thrombosis [Recovering/Resolving]

NARRATIVE: CASE EVENT DATE: 2017
